FAERS Safety Report 7781044-9 (Version None)
Quarter: 2011Q3

REPORT INFORMATION
  Report Type: 
  Country: None (occurrence: None)
  Receive Date: 20110927
  Receipt Date: 20110921
  Transmission Date: 20111222
  Serious: Yes (Hospitalization)
  Sender: FDA-Public Use
  Company Number: ES-ABBOTT-11P-144-0856523-00

PATIENT
  Age: 41 Year
  Sex: Male

DRUGS (2)
  1. ACETAMINOPHEN [Concomitant]
     Indication: PRODUCT USED FOR UNKNOWN INDICATION
     Route: 048
     Dates: start: 20100101
  2. HUMIRA [Suspect]
     Indication: PSORIASIS
     Route: 058
     Dates: start: 20101001, end: 20110801

REACTIONS (5)
  - PULMONARY TUBERCULOSIS [None]
  - PLEURAL EFFUSION [None]
  - PYREXIA [None]
  - ABDOMINAL PAIN UPPER [None]
  - DIARRHOEA [None]
